FAERS Safety Report 8525918-X (Version None)
Quarter: 2012Q3

REPORT INFORMATION
  Report Type: 
  Country: None (occurrence: None)
  Receive Date: 20120720
  Receipt Date: 20120716
  Transmission Date: 20120928
  Serious: No
  Sender: FDA-Public Use
  Company Number: US-PFIZER INC-2012171277

PATIENT
  Sex: Female
  Weight: 65.76 kg

DRUGS (9)
  1. CITRACAL + D [Concomitant]
     Dosage: UNK, 2X/DAY
  2. VITAMIN B COMPLEX CAP [Concomitant]
     Dosage: UNK
  3. LEVOXYL [Suspect]
     Indication: POSTOPERATIVE CARE
     Dosage: 137 UG, 1X/DAY FOR THREE DAYS AND 125MCG ONCE A DAY FOR REMAINING FOUR DAYS IN A WEEK
     Route: 048
     Dates: start: 20100601, end: 20120601
  4. ASPIRIN [Concomitant]
     Dosage: 81 MG, UNK
  5. MULTI-VITAMINS [Concomitant]
     Dosage: UNK
  6. CHONDROITIN/GLUCOSAMINE [Concomitant]
     Dosage: UNK, 2X/DAY
  7. OMEGA-3 TRIGLYCERIDES [Concomitant]
     Dosage: UNK, 1X/DAY
  8. LEVOXYL [Suspect]
     Dosage: 125 UG, 1X/DAY
     Route: 048
     Dates: start: 20120601
  9. ESTER-C [Concomitant]
     Dosage: 500 MG, 1X/DAY

REACTIONS (4)
  - BLOOD THYROID STIMULATING HORMONE DECREASED [None]
  - FREQUENT BOWEL MOVEMENTS [None]
  - DIARRHOEA [None]
  - BLOOD GLUCOSE INCREASED [None]
